FAERS Safety Report 10073867 (Version 1)
Quarter: 2014Q2

REPORT INFORMATION
  Report Type: Spontaneous
  Country: US (occurrence: US)
  Receive Date: 20140411
  Receipt Date: 20140411
  Transmission Date: 20141212
  Serious: No
  Sender: FDA-Public Use
  Company Number: US-B.I. PHARMACEUTICALS,INC./RIDGEFIELD-2014-BI-14187BP

PATIENT
  Age: 77 Year
  Sex: Female
  Weight: 79 kg

DRUGS (8)
  1. PRADAXA [Suspect]
     Indication: ATRIAL FIBRILLATION
     Dosage: 300 MG
     Route: 048
     Dates: start: 20140324
  2. TOPROL [Concomitant]
     Indication: HYPERTENSION
     Dosage: 100 MG
     Route: 048
  3. SYNTHROID [Concomitant]
     Indication: HYPOTHYROIDISM
     Dosage: 50 MCG
     Route: 048
  4. AMIODARONE [Concomitant]
     Indication: ATRIAL FIBRILLATION
     Dosage: 100 MG
     Route: 048
  5. LASIX [Concomitant]
     Indication: FLUID RETENTION
     Route: 048
  6. ENBREL INJECTION [Concomitant]
     Indication: RHEUMATOID ARTHRITIS
     Dosage: 7.1429 MG
     Route: 058
  7. LUMIGAN EYE DROPS [Concomitant]
     Indication: CATARACT
     Route: 050
  8. TIMOLOL EYE DROPS [Concomitant]
     Indication: GLAUCOMA
     Route: 050

REACTIONS (2)
  - Abdominal pain upper [Not Recovered/Not Resolved]
  - Muscle spasms [Not Recovered/Not Resolved]
